FAERS Safety Report 12237009 (Version 2)
Quarter: 2016Q2

REPORT INFORMATION
  Report Type: Spontaneous
  Country: US (occurrence: US)
  Receive Date: 20160405
  Receipt Date: 20160422
  Transmission Date: 20160815
  Serious: Yes (Hospitalization, Other)
  Sender: FDA-Public Use
  Company Number: US-BAUSCH-BL-2016-007720

PATIENT
  Sex: Female

DRUGS (1)
  1. XIFAXAN [Suspect]
     Active Substance: RIFAXIMIN
     Indication: CONFUSIONAL STATE
     Route: 048
     Dates: start: 201602

REACTIONS (3)
  - Cardiac pacemaker insertion [Recovered/Resolved]
  - Gastric haemorrhage [Recovered/Resolved]
  - Off label use [Unknown]
